FAERS Safety Report 6291756-4 (Version None)
Quarter: 2009Q3

REPORT INFORMATION
  Report Type: 
  Country: None (occurrence: None)
  Receive Date: 20090730
  Receipt Date: 20090717
  Transmission Date: 20100115
  Serious: Yes (Disabling, Other)
  Sender: FDA-Public Use
  Company Number: GR-GENENTECH-282938

PATIENT
  Age: 53 Year

DRUGS (1)
  1. XOLAIR [Suspect]
     Indication: ASTHMA
     Dosage: UNK
     Route: 058

REACTIONS (1)
  - BLOOD CREATINE PHOSPHOKINASE INCREASED [None]
